FAERS Safety Report 7280169-4 (Version None)
Quarter: 2011Q1

REPORT INFORMATION
  Report Type: 
  Country: None (occurrence: None)
  Receive Date: 20110208
  Receipt Date: 20110117
  Transmission Date: 20110831
  Serious: Yes (Hospitalization)
  Sender: FDA-Public Use
  Company Number: PHHY2011FR06679

PATIENT
  Sex: Male

DRUGS (11)
  1. ESOMEPRAZOLE [Concomitant]
     Dosage: UNK
  2. COVERSYL [Concomitant]
     Dosage: UNK
  3. SIMVASTATIN [Concomitant]
     Dosage: UNK
  4. BACTRIM [Concomitant]
     Dosage: UNK
  5. LANTUS [Concomitant]
     Dosage: UNK
  6. CORTANCYL [Concomitant]
     Dosage: UNK
  7. CERTICAN [Suspect]
     Indication: HEART TRANSPLANT
     Dosage: UNK
     Dates: end: 20101210
  8. ROVALCYTE [Concomitant]
     Dosage: UNK
  9. ACETAMINOPHEN [Concomitant]
     Dosage: UNK
  10. CACIT D3 [Concomitant]
     Dosage: UNK
  11. KAYEXALATE [Concomitant]
     Dosage: UNK

REACTIONS (4)
  - THROMBOCYTOPENIA [None]
  - BONE MARROW FAILURE [None]
  - LEUKOPENIA [None]
  - ANAEMIA [None]
